FAERS Safety Report 4289965-9 (Version None)
Quarter: 2004Q1

REPORT INFORMATION
  Report Type: 
  Country: None (occurrence: None)
  Receive Date: 20040209
  Receipt Date: 20040122
  Transmission Date: 20041129
  Serious: Yes (Hospitalization)
  Sender: FDA-Public Use
  Company Number: 182968

PATIENT
  Age: 52 Year
  Sex: Female
  Weight: 70.3075 kg

DRUGS (11)
  1. AVONEX [Suspect]
     Indication: MULTIPLE SCLEROSIS
     Dosage: 30 MCG QW IM
     Dates: end: 20031001
  2. AVONEX [Suspect]
     Indication: MULTIPLE SCLEROSIS
     Dosage: 30 MCG QW IM
     Dates: start: 20031001
  3. PREVACID [Concomitant]
  4. NEXIUM [Concomitant]
  5. PROZAC [Concomitant]
  6. IMITREX [Concomitant]
  7. ADVIL [Concomitant]
  8. TRANXENE [Concomitant]
  9. NASONEX [Concomitant]
  10. TAMOXIFEN [Concomitant]
  11. COUMADIN [Concomitant]

REACTIONS (6)
  - ANXIETY [None]
  - ASTHENIA [None]
  - BREAST CANCER [None]
  - FALL [None]
  - METASTASES TO CENTRAL NERVOUS SYSTEM [None]
  - SKIN LACERATION [None]
